FAERS Safety Report 8462552 (Version 2)
Quarter: 2013Q2

REPORT INFORMATION
  Report Type: Spontaneous
  Country: CO (occurrence: CO)
  Receive Date: 20120316
  Receipt Date: 20130426
  Transmission Date: 20140414
  Serious: Yes (Other)
  Sender: FDA-Public Use
  Company Number: CO-JNJFOC-20120306884

PATIENT
  Age: 84 Year
  Sex: Female

DRUGS (2)
  1. REMINYL [Suspect]
     Indication: SENILE DEMENTIA
     Route: 048
     Dates: start: 20101110, end: 201107
  2. REMINYL [Suspect]
     Indication: SENILE DEMENTIA
     Route: 048
     Dates: start: 20121110, end: 20130402

REACTIONS (2)
  - Syncope [Recovered/Resolved]
  - Renal failure [Unknown]
